FAERS Safety Report 9143883 (Version 1)
Quarter: 2013Q1

REPORT INFORMATION
  Report Type: Other
  Country: GB (occurrence: GB)
  Receive Date: 20130306
  Receipt Date: 20130306
  Transmission Date: 20140127
  Serious: Yes (Congenital Anomaly)
  Sender: FDA-Public Use
  Company Number: GB-WATSON-2013-03378

PATIENT
  Sex: 0

DRUGS (1)
  1. FENTANYL (UNKNOWN) [Suspect]
     Indication: ANALGESIC THERAPY
     Dosage: UNK
     Route: 064

REACTIONS (1)
  - Cleft palate [Unknown]
